FAERS Safety Report 21731962 (Version 2)
Quarter: 2023Q1

REPORT INFORMATION
  Report Type: Report from Study
  Country: US (occurrence: US)
  Receive Date: 20221215
  Receipt Date: 20230324
  Transmission Date: 20230418
  Serious: No
  Sender: FDA-Public Use
  Company Number: US-ABBVIE-4185340

PATIENT
  Sex: Female
  Weight: 63.956 kg

DRUGS (5)
  1. RINVOQ [Suspect]
     Active Substance: UPADACITINIB
     Indication: Rheumatoid arthritis
     Dosage: 15 MG
     Route: 048
     Dates: start: 201909
  2. ESTRADIOL [Concomitant]
     Active Substance: ESTRADIOL
     Indication: Vulvovaginal dryness
     Dosage: VAGINAL TAB
     Route: 048
     Dates: start: 201810, end: 20221027
  3. MAGNESIUM [Concomitant]
     Active Substance: MAGNESIUM
     Indication: Migraine
     Dosage: 168 MG
     Route: 048
     Dates: start: 2020, end: 20221027
  4. COENZYME Q10 [Concomitant]
     Active Substance: DIETARY SUPPLEMENT\UBIDECARENONE
     Indication: Migraine
     Dosage: TIME INTERVAL: 0.33333333 DAYS
     Route: 048
     Dates: start: 202010, end: 20221027
  5. SOLIFENACIN [Concomitant]
     Active Substance: SOLIFENACIN
     Indication: Urinary incontinence
     Dosage: 15 MG
     Route: 048
     Dates: start: 202011, end: 20221027

REACTIONS (3)
  - Cardiac disorder [Unknown]
  - COVID-19 [Unknown]
  - Osteitis [Not Recovered/Not Resolved]

NARRATIVE: CASE EVENT DATE: 20220101
